FAERS Safety Report 12937961 (Version 2)
Quarter: 2017Q1

REPORT INFORMATION
  Report Type: Spontaneous
  Country: DE (occurrence: DE)
  Receive Date: 20161114
  Receipt Date: 20170221
  Transmission Date: 20170428
  Serious: Yes (Hospitalization, Other)
  Sender: FDA-Public Use
  Company Number: DE-JNJFOC-20161107872

PATIENT
  Age: 25 Year
  Sex: Male

DRUGS (8)
  1. XEPLION [Suspect]
     Active Substance: PALIPERIDONE PALMITATE
     Indication: SCHIZOPHRENIA
     Route: 030
  2. ZYPREXA [Suspect]
     Active Substance: OLANZAPINE
     Indication: PARANOIA
     Route: 065
     Dates: start: 2016, end: 2016
  3. ZYPREXA [Suspect]
     Active Substance: OLANZAPINE
     Indication: PARANOIA
     Route: 065
  4. ZYPREXA [Suspect]
     Active Substance: OLANZAPINE
     Indication: SCHIZOPHRENIA
     Route: 065
  5. ZYPREXA [Suspect]
     Active Substance: OLANZAPINE
     Indication: PARANOIA
     Route: 065
     Dates: start: 2016
  6. ZYPREXA [Suspect]
     Active Substance: OLANZAPINE
     Indication: SCHIZOPHRENIA
     Route: 065
     Dates: start: 2016
  7. XEPLION [Suspect]
     Active Substance: PALIPERIDONE PALMITATE
     Indication: PARANOIA
     Route: 030
  8. ZYPREXA [Suspect]
     Active Substance: OLANZAPINE
     Indication: SCHIZOPHRENIA
     Route: 065
     Dates: start: 2016, end: 2016

REACTIONS (4)
  - Pyrexia [Recovered/Resolved]
  - Toxicity to various agents [Unknown]
  - Myeloproliferative neoplasm [Unknown]
  - Anaemia [Unknown]

NARRATIVE: CASE EVENT DATE: 2016
